FAERS Safety Report 9867747 (Version 2)
Quarter: 2014Q1

REPORT INFORMATION
  Report Type: Spontaneous
  Country: US (occurrence: US)
  Receive Date: 20140204
  Receipt Date: 20140207
  Transmission Date: 20141002
  Serious: No
  Sender: FDA-Public Use
  Company Number: US-BAXTER-2014BAX003998

PATIENT
  Age: 64 Year
  Sex: Male

DRUGS (1)
  1. DIANEAL LOW CALCIUM [Suspect]
     Indication: RENAL FAILURE CHRONIC
     Route: 033
     Dates: start: 201401

REACTIONS (3)
  - Malaise [Recovering/Resolving]
  - Abdominal distension [Recovering/Resolving]
  - Vomiting [Recovering/Resolving]
